FAERS Safety Report 12293510 (Version 2)
Quarter: 2016Q2

REPORT INFORMATION
  Report Type: Spontaneous
  Country: US (occurrence: US)
  Receive Date: 20160421
  Receipt Date: 20160527
  Transmission Date: 20160815
  Serious: No
  Sender: FDA-Public Use
  Company Number: US-PFIZER INC-2016221444

PATIENT
  Age: 61 Year
  Sex: Female
  Weight: 73.3 kg

DRUGS (1)
  1. REVATIO [Suspect]
     Active Substance: SILDENAFIL CITRATE
     Indication: IMPAIRED QUALITY OF LIFE
     Dosage: 20 MG, 3X/DAY (20MG TABLET MORNING, NOON AND NIGHT)

REACTIONS (4)
  - Vertigo [Recovering/Resolving]
  - Visual impairment [Recovering/Resolving]
  - Pupillary disorder [Recovering/Resolving]
  - Vision blurred [Recovering/Resolving]

NARRATIVE: CASE EVENT DATE: 20160408
